FAERS Safety Report 20020190 (Version 1)
Quarter: 2021Q4

REPORT INFORMATION
  Report Type: Spontaneous
  Country: US (occurrence: US)
  Receive Date: 20211101
  Receipt Date: 20211101
  Transmission Date: 20220303
  Serious: No
  Sender: FDA-Public Use
  Company Number: US-SA-SAC20211027001531

PATIENT
  Sex: Female

DRUGS (1)
  1. DUPIXENT [Suspect]
     Active Substance: DUPILUMAB
     Dosage: 300 MG, QOW
     Route: 058
     Dates: start: 20210823

REACTIONS (10)
  - Eye swelling [Unknown]
  - Pruritus [Unknown]
  - Erythema [Unknown]
  - Eczema [Unknown]
  - Skin exfoliation [Unknown]
  - Skin fissures [Unknown]
  - Scratch [Unknown]
  - Sleep disorder [Unknown]
  - Dry skin [Unknown]
  - Inappropriate schedule of product administration [Unknown]
